FAERS Safety Report 8283277-4 (Version None)
Quarter: 2012Q2

REPORT INFORMATION
  Report Type: 
  Country: None (occurrence: None)
  Receive Date: 20120413
  Receipt Date: 20120404
  Transmission Date: 20120825
  Serious: Yes (Hospitalization)
  Sender: FDA-Public Use
  Company Number: US-ASTRAZENECA-2012SE22617

PATIENT
  Age: 59 Year
  Sex: Female

DRUGS (1)
  1. SYMBICORT [Suspect]
     Dosage: 160/4.5 MCG UNK FREQUENCY
     Route: 055

REACTIONS (5)
  - INTESTINAL OBSTRUCTION [None]
  - BRONCHOPULMONARY ASPERGILLOSIS ALLERGIC [None]
  - PULMONARY CONGESTION [None]
  - DYSPNOEA [None]
  - INTENTIONAL DRUG MISUSE [None]
